FAERS Safety Report 20501379 (Version 3)
Quarter: 2022Q3

REPORT INFORMATION
  Report Type: Other
  Country: BE (occurrence: None)
  Receive Date: 20220222
  Receipt Date: 20220822
  Transmission Date: 20221027
  Serious: No
  Sender: FDA-Public Use
  Company Number: BE-ROCHE-3031294

PATIENT
  Age: 61 Year
  Sex: Male
  Weight: 101.5 kg

DRUGS (17)
  1. OCRELIZUMAB [Suspect]
     Active Substance: OCRELIZUMAB
     Indication: Relapsing-remitting multiple sclerosis
     Dosage: EVERY 6 MONTH
     Route: 042
     Dates: start: 20191223
  2. SOLU-MEDROL [Concomitant]
     Active Substance: METHYLPREDNISOLONE SODIUM SUCCINATE
     Route: 042
     Dates: start: 20220118, end: 20220118
  3. LEVOCETIRIZINE [Concomitant]
     Active Substance: LEVOCETIRIZINE
     Route: 048
     Dates: start: 20220118, end: 20220118
  4. ACETAMINOPHEN [Concomitant]
     Active Substance: ACETAMINOPHEN
     Route: 042
     Dates: start: 20220118, end: 20220118
  5. SILODOSIN [Concomitant]
     Active Substance: SILODOSIN
     Dosage: 1 UNIT
     Route: 048
     Dates: start: 20160926
  6. BEFACT FORTE [Concomitant]
     Indication: Prophylaxis
     Dosage: 1 UNIT
     Route: 048
  7. STAURODORM [Concomitant]
     Indication: Insomnia
     Dosage: 1 UNIT
     Route: 048
  8. RIVOTRIL [Concomitant]
     Active Substance: CLONAZEPAM
     Route: 048
  9. MAGNESIUM [Concomitant]
     Active Substance: MAGNESIUM
     Indication: Prophylaxis
     Dosage: 1 UNIT
     Route: 048
  10. METFORMIN [Concomitant]
     Active Substance: METFORMIN HYDROCHLORIDE
     Route: 048
  11. SIMVASTATIN [Concomitant]
     Active Substance: SIMVASTATIN
     Indication: Hypercholesterolaemia
     Route: 048
     Dates: start: 20200512
  12. NABIXIMOLS [Concomitant]
     Active Substance: NABIXIMOLS
     Dosage: 1 INHALATION
     Route: 048
     Dates: start: 20210222
  13. ZYRTEC (BELGIUM) [Concomitant]
     Route: 048
     Dates: start: 202106, end: 2022
  14. DALFAMPRIDINE [Concomitant]
     Active Substance: DALFAMPRIDINE
     Route: 048
     Dates: start: 20210521
  15. LIORESAL [Concomitant]
     Active Substance: BACLOFEN
     Route: 048
     Dates: start: 20220118
  16. ZOLPIDEM [Concomitant]
     Active Substance: ZOLPIDEM TARTRATE
     Indication: Insomnia
     Route: 048
  17. ACETAMINOPHEN [Concomitant]
     Active Substance: ACETAMINOPHEN
     Route: 048
     Dates: start: 202112

REACTIONS (1)
  - COVID-19 [Recovered/Resolved]

NARRATIVE: CASE EVENT DATE: 20220123
